FAERS Safety Report 5894958-1 (Version None)
Quarter: 2008Q3

REPORT INFORMATION
  Report Type: 
  Country: None (occurrence: None)
  Receive Date: 20080924
  Receipt Date: 20080922
  Transmission Date: 20090109
  Serious: Yes (Life-Threatening, Other)
  Sender: FDA-Public Use
  Company Number: PHEH2008US07899

PATIENT
  Sex: Female

DRUGS (1)
  1. RECLAST [Suspect]
     Indication: OSTEOPOROSIS
     Dosage: UNK, UNK
     Dates: start: 20080821, end: 20080801

REACTIONS (15)
  - APHASIA [None]
  - APPARENT DEATH [None]
  - ASTHENIA [None]
  - BONE PAIN [None]
  - DISORIENTATION [None]
  - FEELING ABNORMAL [None]
  - FEELING COLD [None]
  - HEADACHE [None]
  - LOSS OF CONSCIOUSNESS [None]
  - MENTAL IMPAIRMENT [None]
  - MOVEMENT DISORDER [None]
  - PAIN [None]
  - SOMNOLENCE [None]
  - STOMACH DISCOMFORT [None]
  - SYNCOPE [None]
